FAERS Safety Report 4796933-7 (Version None)
Quarter: 2005Q4

REPORT INFORMATION
  Report Type: 
  Country: None (occurrence: None)
  Receive Date: 20051013
  Receipt Date: 20030911
  Transmission Date: 20060501
  Serious: Yes (Hospitalization)
  Sender: FDA-Public Use
  Company Number: NSADSS2002015904

PATIENT
  Sex: Male
  Weight: 118 kg

DRUGS (2)
  1. PLACEBO [Suspect]
     Route: 048
     Dates: start: 20011026, end: 20011103
  2. PLACEBO [Suspect]
     Indication: DIABETIC NEUROPATHY
     Route: 048
     Dates: start: 20011026, end: 20011103

REACTIONS (3)
  - ELECTROCARDIOGRAM ABNORMAL [None]
  - FATIGUE [None]
  - PALPITATIONS [None]
